FAERS Safety Report 17445979 (Version 1)
Quarter: 2020Q1

REPORT INFORMATION
  Report Type: Spontaneous
  Country: GB (occurrence: GB)
  Receive Date: 20200221
  Receipt Date: 20200221
  Transmission Date: 20200409
  Serious: Yes (Death, Other)
  Sender: FDA-Public Use
  Company Number: GB-AMGEN-GBRSP2020026046

PATIENT

DRUGS (5)
  1. DOCETAXEL. [Suspect]
     Active Substance: DOCETAXEL
     Indication: BREAST CANCER
     Dosage: 75 MILLIGRAM/SQ. METER, Q3WK
     Route: 042
  2. PEGFILGRASTIM [Suspect]
     Active Substance: PEGFILGRASTIM
     Indication: PRODUCT USED FOR UNKNOWN INDICATION
     Dosage: 6 MILLIGRAM, Q3WK (24 H AFTER CHEMOTHERAPY)
     Route: 058
  3. CYCLOPHOSPHAMIDE. [Suspect]
     Active Substance: CYCLOPHOSPHAMIDE
     Indication: BREAST CANCER
     Dosage: 500 MILLIGRAM/SQ. METER, Q3WK
     Route: 042
  4. ADRIAMYCIN [Suspect]
     Active Substance: DOXORUBICIN HYDROCHLORIDE
     Indication: BREAST CANCER
     Dosage: 50 MILLIGRAM/SQ. METER, Q3WK
     Route: 042
  5. DEXAMETHASONE. [Concomitant]
     Active Substance: DEXAMETHASONE
     Indication: PROPHYLAXIS
     Dosage: 8 MILLIGRAM, TID (3 DAYS STARTING 1 DAY BEFORE CHEMOTHERAPY)

REACTIONS (11)
  - Tooth infection [Unknown]
  - Febrile neutropenia [Unknown]
  - Staphylococcal infection [Unknown]
  - Varicella zoster virus infection [Unknown]
  - Necrotising fasciitis [Fatal]
  - C-reactive protein increased [Unknown]
  - Neutropenic sepsis [Unknown]
  - Clostridium difficile colitis [Unknown]
  - Drug ineffective [Unknown]
  - Corynebacterium infection [Unknown]
  - Cellulitis [Unknown]
